FAERS Safety Report 24891544 (Version 6)
Quarter: 2025Q2

REPORT INFORMATION
  Report Type: Spontaneous
  Country: CO (occurrence: CO)
  Receive Date: 20250127
  Receipt Date: 20250609
  Transmission Date: 20250716
  Serious: No
  Sender: PFIZER
  Company Number: CO-PFIZER INC-PV202500005730

PATIENT
  Age: 13 Year
  Sex: Male
  Weight: 40 kg

DRUGS (1)
  1. GENOTROPIN [Suspect]
     Active Substance: SOMATROPIN
     Indication: Short stature
     Dosage: 1.2 MG, DAILY
     Route: 058
     Dates: start: 20240814, end: 20250211

REACTIONS (3)
  - Device leakage [Recovered/Resolved]
  - Device mechanical issue [Recovered/Resolved]
  - Off label use [Unknown]

NARRATIVE: CASE EVENT DATE: 20241201
